FAERS Safety Report 7957935-2 (Version None)
Quarter: 2011Q4

REPORT INFORMATION
  Report Type: 
  Country: None (occurrence: None)
  Receive Date: 20111205
  Receipt Date: 20110318
  Transmission Date: 20120403
  Serious: Yes (Life-Threatening, Hospitalization)
  Sender: FDA-Public Use
  Company Number: JP-BAYER-201011795BYL

PATIENT
  Age: 89 Year
  Sex: Female

DRUGS (10)
  1. ALDACTONE [Concomitant]
     Dosage: DAILY DOSE 25 MG
     Route: 048
     Dates: start: 20100406, end: 20100406
  2. LASIX [Concomitant]
     Dosage: DAILY DOSE 20 MG
     Route: 042
     Dates: start: 20100404, end: 20100405
  3. FAMOTIDINE [Suspect]
     Dosage: 20 MG, UNK
     Route: 048
     Dates: start: 20100406, end: 20100407
  4. ASPIRIN [Suspect]
     Indication: BRAIN STEM INFARCTION
     Dosage: 100 MG, QD
     Route: 048
     Dates: start: 20100205, end: 20100403
  5. LASIX [Concomitant]
     Dosage: DAILY DOSE 20 MG
     Route: 048
     Dates: start: 20100329, end: 20100403
  6. FAMOSTAGINE [Concomitant]
     Dosage: UNK
     Route: 048
     Dates: start: 20100401
  7. FAMOTIDINE [Suspect]
     Dosage: 20 MG, UNK
     Route: 048
     Dates: start: 20100205, end: 20100403
  8. LASIX [Concomitant]
     Dosage: DAILY DOSE 20 MG
     Route: 042
     Dates: start: 20100406, end: 20100406
  9. ALDACTONE [Concomitant]
     Dosage: DAILY DOSE 25 MG
     Route: 048
     Dates: start: 20100329, end: 20100403
  10. ASPIRIN [Suspect]
     Dosage: 100 MG, QD
     Route: 048
     Dates: start: 20100406, end: 20100407

REACTIONS (18)
  - HEPATIC ENCEPHALOPATHY [None]
  - GASTROINTESTINAL HAEMORRHAGE [None]
  - ALTERED STATE OF CONSCIOUSNESS [None]
  - ANTIMITOCHONDRIAL ANTIBODY POSITIVE [None]
  - BLOOD PRESSURE DIASTOLIC DECREASED [None]
  - IDIOSYNCRATIC DRUG REACTION [None]
  - OEDEMA PERIPHERAL [None]
  - HEART RATE INCREASED [None]
  - WHEEZING [None]
  - SOMNOLENCE [None]
  - LIVER DISORDER [None]
  - ASCITES [None]
  - DECREASED APPETITE [None]
  - ANTINUCLEAR ANTIBODY POSITIVE [None]
  - AMMONIA INCREASED [None]
  - ATAXIA [None]
  - PARALYSIS FLACCID [None]
  - PNEUMONIA ASPIRATION [None]
